FAERS Safety Report 12927205 (Version 2)
Quarter: 2016Q4

REPORT INFORMATION
  Report Type: Spontaneous
  Country: US (occurrence: US)
  Receive Date: 20161109
  Receipt Date: 20161130
  Transmission Date: 20170207
  Serious: Yes (Hospitalization)
  Sender: FDA-Public Use
  Company Number: US-BEH-2016074933

PATIENT
  Sex: Female
  Weight: 66.21 kg

DRUGS (14)
  1. HIZENTRA [Suspect]
     Active Substance: HUMAN IMMUNOGLOBULIN G
     Indication: IMMUNODEFICIENCY COMMON VARIABLE
     Dosage: 100 MG, QW
     Route: 058
     Dates: start: 20160929
  2. AMBIEN [Concomitant]
     Active Substance: ZOLPIDEM TARTRATE
  3. NORVASC [Concomitant]
     Active Substance: AMLODIPINE BESYLATE
  4. BYSTOLIC [Concomitant]
     Active Substance: NEBIVOLOL HYDROCHLORIDE
  5. LIPITOR [Concomitant]
     Active Substance: ATORVASTATIN CALCIUM
  6. CALCIUM [Concomitant]
     Active Substance: CALCIUM
  7. PROLIA [Concomitant]
     Active Substance: DENOSUMAB
  8. HIZENTRA [Suspect]
     Active Substance: HUMAN IMMUNOGLOBULIN G
     Dosage: UNK
     Route: 058
  9. EPIPEN [Concomitant]
     Active Substance: EPINEPHRINE
  10. DIPHENHYDRAMINE. [Concomitant]
     Active Substance: DIPHENHYDRAMINE
  11. ASPIRIN. [Concomitant]
     Active Substance: ASPIRIN
  12. TRAZODONE [Concomitant]
     Active Substance: TRAZODONE HYDROCHLORIDE
  13. CYMBALTA [Concomitant]
     Active Substance: DULOXETINE HYDROCHLORIDE
  14. HYDRALAZINE [Concomitant]
     Active Substance: HYDRALAZINE HYDROCHLORIDE

REACTIONS (3)
  - Adverse drug reaction [Unknown]
  - Mouth swelling [Unknown]
  - Pruritus [Unknown]
